FAERS Safety Report 20063481 (Version 2)
Quarter: 2021Q4

REPORT INFORMATION
  Report Type: Other
  Country: TH (occurrence: None)
  Receive Date: 20211112
  Receipt Date: 20211211
  Transmission Date: 20220303
  Serious: Yes (Hospitalization)
  Sender: FDA-Public Use
  Company Number: TH-ROCHE-2950119

PATIENT
  Age: 3 Day
  Sex: Female
  Weight: 2.11 kg

DRUGS (2)
  1. VALGANCICLOVIR [Suspect]
     Active Substance: VALGANCICLOVIR
     Indication: Cytomegalovirus infection
     Route: 065
  2. GANCICLOVIR [Concomitant]
     Active Substance: GANCICLOVIR
     Indication: Cytomegalovirus infection

REACTIONS (2)
  - Anaemia [Unknown]
  - Off label use [Unknown]
